FAERS Safety Report 21037070 (Version 2)
Quarter: 2022Q3

REPORT INFORMATION
  Report Type: Spontaneous
  Country: US (occurrence: None)
  Receive Date: 20220702
  Receipt Date: 20220718
  Transmission Date: 20221027
  Serious: No
  Sender: FDA-Public Use
  Company Number: US-Merck Healthcare KGaA-9332704

PATIENT
  Age: 32 Year
  Sex: Male

DRUGS (1)
  1. MAVENCLAD [Suspect]
     Active Substance: CLADRIBINE
     Indication: Multiple sclerosis

REACTIONS (10)
  - Fatigue [Unknown]
  - Gait disturbance [Unknown]
  - Musculoskeletal stiffness [Unknown]
  - Discomfort [Unknown]
  - Bradykinesia [Unknown]
  - Joint stiffness [Unknown]
  - Depression [Unknown]
  - Anxiety [Unknown]
  - Hypokinesia [Unknown]
  - Initial insomnia [Unknown]
